FAERS Safety Report 21892757 (Version 1)
Quarter: 2023Q1

REPORT INFORMATION
  Report Type: Report from Study
  Country: US (occurrence: US)
  Receive Date: 20230120
  Receipt Date: 20230120
  Transmission Date: 20230418
  Serious: Yes (Hospitalization, Other)
  Sender: FDA-Public Use
  Company Number: US-BAUSCH-BL-2021-038495

PATIENT
  Age: 70 Year
  Sex: Female
  Weight: 71.634 kg

DRUGS (7)
  1. XIFAXAN [Suspect]
     Active Substance: RIFAXIMIN
     Indication: Product used for unknown indication
     Dosage: 1 TAB PO BID 11 REFILLS
     Route: 048
  2. CALCIUM\VITAMIN D [Concomitant]
     Active Substance: CALCIUM\VITAMIN D
     Indication: Product used for unknown indication
     Dosage: PO BID 3 REFILLS
     Route: 048
  3. FUROSEMIDE [Concomitant]
     Active Substance: FUROSEMIDE
     Indication: Product used for unknown indication
     Dosage: 1 TAB(20 MG) DAILY
     Route: 048
  4. LACTULOSE [Concomitant]
     Active Substance: LACTULOSE
     Indication: Product used for unknown indication
     Dosage: 10G/15ML, (20GM=30ML) 3 REFILLS
     Route: 048
  5. PANTOPRAZOLE [Concomitant]
     Active Substance: PANTOPRAZOLE
     Indication: Product used for unknown indication
     Route: 048
  6. SPIRONOLACTONE [Concomitant]
     Active Substance: SPIRONOLACTONE
     Indication: Product used for unknown indication
     Dosage: 1 TAB (50 MG), DAILY
     Route: 048
  7. ZINC SULFATE [Concomitant]
     Active Substance: ZINC SULFATE
     Indication: Product used for unknown indication
     Dosage: 1 TAB (220 MG) DAILY PO 3 REFILLS
     Route: 048

REACTIONS (7)
  - Urinary tract infection [Recovered/Resolved]
  - Abdominal hernia obstructive [Recovered/Resolved]
  - Hypertension [Unknown]
  - Weight increased [Unknown]
  - Weight decreased [Unknown]
  - Confusional state [Unknown]
  - Fatigue [Unknown]
